FAERS Safety Report 20739684 (Version 2)
Quarter: 2022Q2

REPORT INFORMATION
  Report Type: Spontaneous
  Country: US (occurrence: US)
  Receive Date: 20220422
  Receipt Date: 20220621
  Transmission Date: 20220721
  Serious: Yes (Other)
  Sender: FDA-Public Use
  Company Number: US-MALLINCKRODT-T202201837

PATIENT
  Sex: Female
  Weight: 78 kg

DRUGS (2)
  1. H.P. ACTHAR [Suspect]
     Active Substance: CORTICOTROPIN
     Indication: Multiple sclerosis
     Dosage: 80 UNITS/1 MILLILITER, QD FOR 2 WEEKS
     Route: 058
     Dates: start: 202204, end: 2022
  2. H.P. ACTHAR [Suspect]
     Active Substance: CORTICOTROPIN
     Indication: COVID-19
     Dosage: 80 UNITS/1 MILLILITER, QD FOR 2 WEEKS
     Route: 058
     Dates: start: 2022

REACTIONS (5)
  - COVID-19 [Unknown]
  - Hypoaesthesia [Unknown]
  - Gait disturbance [Unknown]
  - Temperature intolerance [Unknown]
  - Fatigue [Unknown]

NARRATIVE: CASE EVENT DATE: 20220101
